FAERS Safety Report 12208532 (Version 1)
Quarter: 2016Q1

REPORT INFORMATION
  Report Type: Report from Study
  Country: US (occurrence: US)
  Receive Date: 20160324
  Receipt Date: 20160324
  Transmission Date: 20160526
  Serious: No
  Sender: FDA-Public Use
  Company Number: US-MDT-ADR-2016-00557

PATIENT
  Age: 50 Year
  Sex: Male

DRUGS (8)
  1. BUPIVACAINE [Suspect]
     Active Substance: BUPIVACAINE
     Indication: PAIN
     Dosage: 10.827MG/DAY
  2. CLONIDINE. [Suspect]
     Active Substance: CLONIDINE
     Indication: PAIN
     Dosage: 213.21 MCG/DAY
  3. FENTANYL. [Suspect]
     Active Substance: FENTANYL
     Indication: PAIN
     Dosage: 129.92MCG/DAY
  4. FENTANYL. [Suspect]
     Active Substance: FENTANYL
     Indication: PAIN
     Dosage: 159.91 MCG/DAY
  5. COMPOUNDED BACLOFEN [Suspect]
     Active Substance: BACLOFEN
     Indication: PAIN
     Dosage: 173.23MCG/DAY
  6. COMPOUNDED BACLOFEN [Suspect]
     Active Substance: BACLOFEN
     Indication: PAIN
     Dosage: 213.21 MCG/DAY
  7. CLONIDINE. [Suspect]
     Active Substance: CLONIDINE
     Indication: PAIN
     Dosage: 173.23MCG/DAY
  8. BUPIVACAINE [Suspect]
     Active Substance: BUPIVACAINE
     Indication: PAIN
     Dosage: 13.326 MG/DAY

REACTIONS (3)
  - Hypoaesthesia [Recovered/Resolved]
  - Infusion site pain [Not Recovered/Not Resolved]
  - Dizziness [Recovered/Resolved]
